FAERS Safety Report 8174104-4 (Version None)
Quarter: 2012Q1

REPORT INFORMATION
  Report Type: 
  Country: None (occurrence: None)
  Receive Date: 20120224
  Receipt Date: 20120213
  Transmission Date: 20120608
  Serious: Yes (Disabling)
  Sender: FDA-Public Use
  Company Number: 2012MA002071

PATIENT
  Age: 31 Year
  Sex: Male

DRUGS (3)
  1. SUMATRIPTAN [Concomitant]
  2. PROPRANOLOL [Concomitant]
  3. RAMIPRIL [Suspect]

REACTIONS (1)
  - HEADACHE [None]
